FAERS Safety Report 21505050 (Version 1)
Quarter: 2022Q4

REPORT INFORMATION
  Report Type: Spontaneous
  Country: US (occurrence: US)
  Receive Date: 20221025
  Receipt Date: 20221025
  Transmission Date: 20230113
  Serious: No
  Sender: FDA-Public Use
  Company Number: US-BAUSCHBL-2022BNL001334

PATIENT
  Sex: Male

DRUGS (1)
  1. PROLENSA [Suspect]
     Active Substance: BROMFENAC SODIUM
     Indication: Postoperative care
     Dosage: 1 DROP A DAY EVERYDAY FOR 4 WEEKS.
     Route: 047

REACTIONS (2)
  - Product prescribing issue [Unknown]
  - Product use issue [Unknown]
